FAERS Safety Report 21413340 (Version 1)
Quarter: 2022Q4

REPORT INFORMATION
  Report Type: Spontaneous
  Country: ES (occurrence: ES)
  Receive Date: 20221006
  Receipt Date: 20221006
  Transmission Date: 20230113
  Serious: Yes (Death, Hospitalization, Other)
  Sender: FDA-Public Use
  Company Number: ES-AEMPS-1263915

PATIENT
  Age: 17 Year
  Sex: Male

DRUGS (5)
  1. LAMOTRIGINE [Interacting]
     Active Substance: LAMOTRIGINE
     Indication: Epilepsy
     Dosage: UNK
     Route: 048
     Dates: start: 20220513, end: 20220807
  2. LAMOTRIGINE [Interacting]
     Active Substance: LAMOTRIGINE
     Dosage: 100 MILLIGRAM, TWO TIMES A DAY (100-0-100 SINCE TWO WEEKS AGO)
     Route: 048
     Dates: start: 20220808, end: 20220822
  3. VALPROIC ACID [Interacting]
     Active Substance: VALPROIC ACID
     Indication: Epilepsy
     Dosage: 1200 MILLIGRAM, ONCE A DAY (500-200-500)
     Route: 048
     Dates: start: 20211123, end: 20220603
  4. VALPROIC ACID [Interacting]
     Active Substance: VALPROIC ACID
     Dosage: UNK, DISMINUCION PROGRESIVA DE DOSIS CADA DOS SEMANAS
     Route: 065
     Dates: start: 20220604, end: 20220818
  5. VALPROIC ACID [Interacting]
     Active Substance: VALPROIC ACID
     Dosage: 200 MILLIGRAM, ONCE A DAY
     Route: 065
     Dates: start: 20220819, end: 20220822

REACTIONS (2)
  - Brugada syndrome [Fatal]
  - Cardio-respiratory arrest [Fatal]

NARRATIVE: CASE EVENT DATE: 20220822
